FAERS Safety Report 14346592 (Version 6)
Quarter: 2018Q2

REPORT INFORMATION
  Report Type: Report from Study
  Country: US (occurrence: US)
  Receive Date: 20180103
  Receipt Date: 20180426
  Transmission Date: 20180711
  Serious: Yes (Death, Hospitalization)
  Sender: FDA-Public Use
  Company Number: US-ACTELION-A-NJ2017-162625

PATIENT
  Age: 66 Year
  Sex: Male
  Weight: 91.61 kg

DRUGS (4)
  1. SILDENAFIL CITRATE. [Concomitant]
     Active Substance: SILDENAFIL CITRATE
     Dosage: 40 MG, TID
  2. VELETRI [Suspect]
     Active Substance: EPOPROSTENOL
     Dosage: 44 NG/KG, PER MIN
     Route: 042
  3. VELETRI [Suspect]
     Active Substance: EPOPROSTENOL
     Indication: PULMONARY ARTERIAL HYPERTENSION
     Dosage: 20 NG/KG, PER MIN
     Route: 042
     Dates: start: 20171106
  4. ORENITRAM [Concomitant]
     Active Substance: TREPROSTINIL
     Dosage: UNK

REACTIONS (28)
  - Nausea [Not Recovered/Not Resolved]
  - Hypotension [Recovering/Resolving]
  - Dizziness [Unknown]
  - Muscle tightness [Unknown]
  - Heart rate increased [Unknown]
  - Rash erythematous [Recovering/Resolving]
  - Dyspnoea exertional [Unknown]
  - Dehydration [Unknown]
  - Rash pruritic [Recovered/Resolved]
  - Sputum discoloured [Unknown]
  - Palpitations [Unknown]
  - Feeling cold [Unknown]
  - Influenza [Unknown]
  - Viral infection [Unknown]
  - Abdominal pain [Recovered/Resolved]
  - Dyspnoea [Unknown]
  - Pain in jaw [Not Recovered/Not Resolved]
  - Productive cough [Unknown]
  - Asthenia [Unknown]
  - Nasopharyngitis [Unknown]
  - Catheter management [Unknown]
  - Constipation [Unknown]
  - Pulmonary hypertension [Fatal]
  - Tachycardia [Unknown]
  - Oxygen saturation decreased [Unknown]
  - Upper respiratory tract infection [Unknown]
  - Pneumonia [Unknown]
  - Device issue [Unknown]

NARRATIVE: CASE EVENT DATE: 20171109
